FAERS Safety Report 11977977 (Version 1)
Quarter: 2016Q1

REPORT INFORMATION
  Report Type: Report from Study
  Country: BE (occurrence: BE)
  Receive Date: 20160129
  Receipt Date: 20160129
  Transmission Date: 20160526
  Serious: Yes (Hospitalization)
  Sender: FDA-Public Use
  Company Number: BE-ABBVIE-12P-013-0928242-07

PATIENT
  Age: 47 Year
  Sex: Female

DRUGS (11)
  1. TEMESTA [Concomitant]
     Active Substance: LORAZEPAM
     Indication: INSOMNIA
     Dates: start: 2011
  2. CETIRIZINE [Concomitant]
     Active Substance: CETIRIZINE HYDROCHLORIDE
     Indication: HYPERSENSITIVITY
     Dates: start: 2011
  3. PANTOMED [Concomitant]
     Active Substance: DEXPANTHENOL
     Dates: start: 20120208, end: 20120218
  4. EFEXOR-EXEL [Concomitant]
     Dates: start: 200908
  5. ZOLPIDEM [Concomitant]
     Active Substance: ZOLPIDEM\ZOLPIDEM TARTRATE
     Indication: INSOMNIA
     Dates: start: 2011
  6. PANTOMED [Concomitant]
     Active Substance: DEXPANTHENOL
     Dates: start: 200912, end: 20120207
  7. PANTOMED [Concomitant]
     Active Substance: DEXPANTHENOL
     Indication: ABDOMINAL PAIN UPPER
     Dates: start: 200904, end: 200909
  8. EFEXOR-EXEL [Concomitant]
     Indication: INSOMNIA
     Dates: start: 20090703, end: 20090708
  9. DAFALGAN [Concomitant]
     Active Substance: ACETAMINOPHEN
     Indication: ABDOMINAL PAIN
     Dates: start: 20090705, end: 20090705
  10. HUMIRA [Suspect]
     Active Substance: ADALIMUMAB
     Indication: CROHN^S DISEASE
     Route: 058
     Dates: end: 20090701
  11. DAFALGAN [Concomitant]
     Active Substance: ACETAMINOPHEN
     Dates: start: 200908

REACTIONS (1)
  - Intestinal obstruction [Unknown]

NARRATIVE: CASE EVENT DATE: 20110504
